FAERS Safety Report 5217277-5 (Version None)
Quarter: 2007Q1

REPORT INFORMATION
  Report Type: 
  Country: None (occurrence: None)
  Receive Date: 20070124
  Receipt Date: 20051212
  Transmission Date: 20070707
  Serious: No
  Sender: FDA-Public Use
  Company Number: US-GLAXOSMITHKLINE-A0585521A

PATIENT
  Age: 57 Year
  Sex: Female

DRUGS (3)
  1. PAXIL CR [Suspect]
     Indication: OBSESSIVE-COMPULSIVE DISORDER
     Dosage: 25MG PER DAY
     Route: 048
     Dates: start: 20051122
  2. LISINOPRIL [Concomitant]
  3. HERBS [Concomitant]

REACTIONS (1)
  - HYPOAESTHESIA [None]
